FAERS Safety Report 10497258 (Version 1)
Quarter: 2014Q4

REPORT INFORMATION
  Report Type: Spontaneous
  Country: US (occurrence: US)
  Receive Date: 20141006
  Receipt Date: 20141006
  Transmission Date: 20150528
  Serious: Yes (Hospitalization)
  Sender: FDA-Public Use
  Company Number: US-AMGEN-USASP2014075069

PATIENT
  Age: 52 Year
  Sex: Male

DRUGS (2)
  1. HYDROCODONE [Suspect]
     Active Substance: HYDROCODONE
     Indication: PRODUCT USED FOR UNKNOWN INDICATION
     Dosage: UNK
     Route: 065
  2. ENBREL [Suspect]
     Active Substance: ETANERCEPT
     Indication: ANKYLOSING SPONDYLITIS
     Dosage: 50 MG, QWK
     Route: 065
     Dates: start: 20140807, end: 20140829

REACTIONS (5)
  - Incision site erythema [Not Recovered/Not Resolved]
  - Spinal laminectomy [Recovered/Resolved]
  - Urticaria [Not Recovered/Not Resolved]
  - Bloody discharge [Not Recovered/Not Resolved]
  - Hypersensitivity [Not Recovered/Not Resolved]
